FAERS Safety Report 10456266 (Version 1)
Quarter: 2014Q3

REPORT INFORMATION
  Report Type: Spontaneous
  Country: JP (occurrence: JP)
  Receive Date: 20140916
  Receipt Date: 20140916
  Transmission Date: 20150326
  Serious: Yes (Other)
  Sender: FDA-Public Use
  Company Number: JP-RB PHARMACEUTICALS LIMITED-RB-69673-2014

PATIENT

DRUGS (1)
  1. LEPETAN [Suspect]
     Active Substance: BUPRENORPHINE HYDROCHLORIDE
     Indication: PRODUCT USED FOR UNKNOWN INDICATION
     Dosage: UNK
     Route: 051

REACTIONS (3)
  - Hallucination [Unknown]
  - Hallucination, visual [Unknown]
  - Depressed level of consciousness [Unknown]
